FAERS Safety Report 11128615 (Version 2)
Quarter: 2015Q3

REPORT INFORMATION
  Report Type: Spontaneous
  Country: JP (occurrence: JP)
  Receive Date: 20150521
  Receipt Date: 20150812
  Transmission Date: 20151125
  Serious: Yes (Other)
  Sender: FDA-Public Use
  Company Number: JP-PFIZER INC-2015168517

PATIENT
  Age: 79 Year
  Sex: Female

DRUGS (1)
  1. DIFLUCAN [Suspect]
     Active Substance: FLUCONAZOLE
     Indication: CANDIDA TEST POSITIVE
     Dosage: UNK
     Route: 048
     Dates: start: 20150513

REACTIONS (1)
  - Mycotic endophthalmitis [Unknown]
